FAERS Safety Report 25686697 (Version 1)
Quarter: 2025Q3

REPORT INFORMATION
  Report Type: Spontaneous
  Country: CN (occurrence: CN)
  Receive Date: 20250816
  Receipt Date: 20250816
  Transmission Date: 20251021
  Serious: Yes (Hospitalization)
  Sender: AMGEN
  Company Number: CN-AMGEN-CHNSP2025158210

PATIENT
  Age: 57 Year
  Sex: Male

DRUGS (5)
  1. XGEVA [Suspect]
     Active Substance: DENOSUMAB
     Indication: Hypercalcaemia of malignancy
     Dosage: 120 MILLIGRAM, QMO
     Route: 065
     Dates: start: 202308
  2. XGEVA [Suspect]
     Active Substance: DENOSUMAB
     Indication: Metastases to bone
  3. MIACALCIC [Concomitant]
     Active Substance: CALCITONIN SALMON
  4. EPIRUBICIN [Concomitant]
     Active Substance: EPIRUBICIN
     Indication: Soft tissue sarcoma
     Route: 065
     Dates: start: 20230824
  5. EPIRUBICIN [Concomitant]
     Active Substance: EPIRUBICIN
     Indication: Bone cancer

REACTIONS (10)
  - Gangrene [Unknown]
  - Hypophosphataemia [Unknown]
  - Hypocalcaemia [Unknown]
  - Aortic thrombosis [Unknown]
  - Iliac artery stenosis [Unknown]
  - Blue toe syndrome [Unknown]
  - Metastasis [Unknown]
  - Femoral neck fracture [Unknown]
  - Angiosarcoma metastatic [Unknown]
  - Soft tissue sarcoma [Unknown]

NARRATIVE: CASE EVENT DATE: 20230101
